FAERS Safety Report 7826405-4 (Version None)
Quarter: 2011Q4

REPORT INFORMATION
  Report Type: 
  Country: None (occurrence: None)
  Receive Date: 20111020
  Receipt Date: 20111012
  Transmission Date: 20120403
  Serious: No
  Sender: FDA-Public Use
  Company Number: US-BIOGENIDEC-2011BI039716

PATIENT
  Age: 48 Year
  Sex: Male

DRUGS (1)
  1. TYSABRI [Suspect]
     Indication: MULTIPLE SCLEROSIS
     Route: 042
     Dates: start: 20110610

REACTIONS (5)
  - MUSCULOSKELETAL DISORDER [None]
  - HYPOAESTHESIA [None]
  - HYPERHIDROSIS [None]
  - BALANCE DISORDER [None]
  - FEELING HOT [None]
